FAERS Safety Report 23859593 (Version 2)
Quarter: 2024Q2

REPORT INFORMATION
  Report Type: Spontaneous
  Country: FR (occurrence: FR)
  Receive Date: 20240515
  Receipt Date: 20240528
  Transmission Date: 20240716
  Serious: Yes (Death, Other)
  Sender: FDA-Public Use
  Company Number: None

PATIENT
  Age: 72 Year
  Sex: Female
  Weight: 69.6 kg

DRUGS (1)
  1. SACITUZUMAB GOVITECAN-HZIY [Suspect]
     Active Substance: SACITUZUMAB GOVITECAN-HZIY
     Indication: Breast cancer metastatic
     Route: 042
     Dates: start: 202403, end: 20240404

REACTIONS (5)
  - Urinary tract infection [Fatal]
  - Vomiting [Fatal]
  - Neutropenia [Fatal]
  - Diarrhoea [Fatal]
  - Anaemia [Fatal]

NARRATIVE: CASE EVENT DATE: 20240401
